FAERS Safety Report 4465695-5 (Version None)
Quarter: 2004Q4

REPORT INFORMATION
  Report Type: 
  Country: None (occurrence: None)
  Receive Date: 20041004
  Receipt Date: 20040924
  Transmission Date: 20050328
  Serious: Yes (Other)
  Sender: FDA-Public Use
  Company Number: GB-MERCK-0409GBR00248

PATIENT
  Age: 68 Year
  Sex: Female
  Weight: 84 kg

DRUGS (13)
  1. ACETAMINOPHEN [Concomitant]
     Route: 048
  2. ACETAMINOPHEN AND CODEINE PHOSPHATE [Concomitant]
     Route: 065
  3. BETAMETHASONE [Concomitant]
     Route: 061
  4. CEPHALEXIN [Concomitant]
     Route: 065
  5. DIAZEPAM [Concomitant]
     Route: 065
  6. FLUTICASONE PROPIONATE AND SALMETEROL XINAFOATE [Concomitant]
     Route: 055
  7. FUROSEMIDE [Concomitant]
     Route: 065
  8. IBUPROFEN [Concomitant]
     Route: 061
  9. KETOCONAZOLE [Concomitant]
     Route: 061
  10. VIOXX [Suspect]
     Indication: RHEUMATOID ARTHRITIS
     Route: 048
     Dates: end: 20040812
  11. VIOXX [Suspect]
     Route: 048
     Dates: start: 20040813, end: 20040904
  12. VIOXX [Suspect]
     Route: 048
     Dates: start: 20040905
  13. ROSIGLITAZONE MALEATE [Concomitant]
     Route: 048

REACTIONS (5)
  - ALOPECIA [None]
  - BLISTER [None]
  - HALLUCINATION [None]
  - OEDEMA PERIPHERAL [None]
  - RASH [None]
